FAERS Safety Report 21301819 (Version 1)
Quarter: 2022Q3

REPORT INFORMATION
  Report Type: Spontaneous
  Country: US (occurrence: US)
  Receive Date: 20220907
  Receipt Date: 20220907
  Transmission Date: 20221026
  Serious: Yes (Life-Threatening, Hospitalization)
  Sender: FDA-Public Use
  Company Number: US-PFIZER INC-PV202200052807

PATIENT
  Age: 43 Year
  Sex: Male

DRUGS (11)
  1. METOPROLOL TARTRATE [Suspect]
     Active Substance: METOPROLOL TARTRATE
     Dosage: UNK
  2. METHADONE [Concomitant]
     Active Substance: METHADONE HYDROCHLORIDE
     Indication: Drug use disorder
     Dosage: 95 MG, DAILY
  3. METHADONE [Concomitant]
     Active Substance: METHADONE HYDROCHLORIDE
     Dosage: 75 MG, DAILY (30MG MORNING AND 45MG NIGHTLY)
  4. NALTREXONE [Concomitant]
     Active Substance: NALTREXONE
     Indication: Withdrawal syndrome
     Dosage: (25 MG)
  5. BUPRENORPHINE\NALOXONE [Concomitant]
     Active Substance: BUPRENORPHINE\NALOXONE
     Indication: Withdrawal syndrome
     Dosage: UNK (16 MG/4 MG)
  6. BUPRENORPHINE\NALOXONE [Concomitant]
     Active Substance: BUPRENORPHINE\NALOXONE
     Dosage: UNK (8 MG/2 MG 2X/DAY)
  7. FOLIC ACID [Concomitant]
     Active Substance: FOLIC ACID
     Dosage: 1 MG, DAILY
  8. LISINOPRIL [Concomitant]
     Active Substance: LISINOPRIL
     Dosage: 20 MG, DAILY
  9. METFORMIN [Concomitant]
     Active Substance: METFORMIN HYDROCHLORIDE
     Dosage: 1000 MG, DAILY
  10. METOCLOPRAMIDE [Concomitant]
     Active Substance: METOCLOPRAMIDE
     Dosage: 10 MG, 4X/DAY (WITH MEALS)
  11. OMEPRAZOLE [Concomitant]
     Active Substance: OMEPRAZOLE
     Dosage: 20 MG, DAILY

REACTIONS (1)
  - Hypotension [Unknown]
